FAERS Safety Report 4351364-9 (Version None)
Quarter: 2004Q2

REPORT INFORMATION
  Report Type: 
  Country: None (occurrence: None)
  Receive Date: 20040503
  Receipt Date: 20040422
  Transmission Date: 20050107
  Serious: Yes (Hospitalization, Other)
  Sender: FDA-Public Use
  Company Number: PHRM2004FR01603

PATIENT
  Age: 27 Year
  Sex: Female

DRUGS (2)
  1. TEGRETOL [Suspect]
     Indication: EPILEPSY
     Dosage: 800 MG/DAY
     Route: 048
     Dates: start: 19900615
  2. SPECIAFOLDINE [Concomitant]
     Dosage: 5 MG/DAY
     Route: 048
     Dates: start: 20030801, end: 20031101

REACTIONS (10)
  - ANTEPARTUM HAEMORRHAGE [None]
  - CHORIOAMNIONITIS [None]
  - COMPLICATIONS OF MATERNAL EXPOSURE TO THERAPEUTIC DRUGS [None]
  - DRUG EXPOSURE DURING PREGNANCY [None]
  - HAEMATOMA [None]
  - INDUCED LABOUR [None]
  - INTRA-UTERINE DEATH [None]
  - METRORRHAGIA [None]
  - PLACENTAL DISORDER [None]
  - PREGNANCY [None]
